FAERS Safety Report 12727745 (Version 1)
Quarter: 2016Q3

REPORT INFORMATION
  Report Type: Spontaneous
  Country: US (occurrence: US)
  Receive Date: 20160909
  Receipt Date: 20160909
  Transmission Date: 20161109
  Serious: No
  Sender: FDA-Public Use
  Company Number: US-ASTRAZENECA-2016SE89385

PATIENT
  Sex: Female

DRUGS (2)
  1. NEXIUM 24HR [Suspect]
     Active Substance: ESOMEPRAZOLE MAGNESIUM
     Dosage: TWO 20MG CAPSULES A DAY
     Route: 048
  2. ZEFIX [Concomitant]
     Active Substance: LAMIVUDINE

REACTIONS (6)
  - Intentional product use issue [Unknown]
  - Dysphonia [Unknown]
  - Oropharyngeal pain [Unknown]
  - Constipation [Unknown]
  - Diarrhoea [Unknown]
  - Anger [Unknown]
